FAERS Safety Report 12284278 (Version 2)
Quarter: 2016Q4

REPORT INFORMATION
  Report Type: Spontaneous
  Country: FR (occurrence: FR)
  Receive Date: 20160420
  Receipt Date: 20161012
  Transmission Date: 20170207
  Serious: Yes (Hospitalization)
  Sender: FDA-Public Use
  Company Number: FR-009507513-1604FRA011701

PATIENT
  Age: 91 Year
  Sex: Female
  Weight: 47 kg

DRUGS (4)
  1. ACETAMINOPHEN. [Concomitant]
     Active Substance: ACETAMINOPHEN
     Dosage: UNK
     Dates: end: 20160401
  2. NORSET [Suspect]
     Active Substance: MIRTAZAPINE
     Dosage: 15 MG, QD
     Route: 048
     Dates: start: 20160317, end: 20160401
  3. MIANSERIN HYDROCHLORIDE [Suspect]
     Active Substance: MIANSERIN HYDROCHLORIDE
     Dosage: 30 MG, QD
     Route: 048
     Dates: start: 20160208, end: 20160401
  4. EXELON [Suspect]
     Active Substance: RIVASTIGMINE TARTRATE
     Dosage: 4.5 MG, Q24H
     Route: 048
     Dates: start: 20160212, end: 20160401

REACTIONS (6)
  - Alanine aminotransferase increased [Recovering/Resolving]
  - Blood alkaline phosphatase increased [Recovering/Resolving]
  - Aspartate aminotransferase increased [Recovered/Resolved]
  - Liver disorder [Recovering/Resolving]
  - Hyperbilirubinaemia [Recovered/Resolved]
  - Gamma-glutamyltransferase increased [Recovering/Resolving]

NARRATIVE: CASE EVENT DATE: 20160331
